FAERS Safety Report 18591334 (Version 2)
Quarter: 2020Q4

REPORT INFORMATION
  Report Type: Report from Study
  Country: US (occurrence: US)
  Receive Date: 20201208
  Receipt Date: 20201215
  Transmission Date: 20210114
  Serious: Yes (Hospitalization)
  Sender: FDA-Public Use
  Company Number: US-EISAI MEDICAL RESEARCH-EC-2020-084742

PATIENT
  Age: 62 Year
  Sex: Female

DRUGS (7)
  1. LENVIMA [Suspect]
     Active Substance: LENVATINIB
     Route: 048
     Dates: start: 20200817
  2. BACTRIM [Concomitant]
     Active Substance: SULFAMETHOXAZOLE\TRIMETHOPRIM
     Indication: URINARY TRACT INFECTION
     Dosage: DOSE AND FREQUENCY UNKNOWN
     Route: 065
  3. LENVIMA [Suspect]
     Active Substance: LENVATINIB
     Indication: ENDOMETRIAL CANCER
     Route: 048
     Dates: start: 20200429, end: 20200719
  4. LENVIMA [Suspect]
     Active Substance: LENVATINIB
     Dosage: DOSE: 10 MG ALTERNATING WITH 20 MG/DAILY
     Route: 048
     Dates: start: 20200805, end: 20200816
  5. LEVOTHYROXINE. [Concomitant]
     Active Substance: LEVOTHYROXINE
  6. KEYTRUDA [Concomitant]
     Active Substance: PEMBROLIZUMAB
  7. LENVIMA [Suspect]
     Active Substance: LENVATINIB
     Route: 048
     Dates: start: 20200727, end: 20200804

REACTIONS (7)
  - Stomatitis [Recovering/Resolving]
  - Diarrhoea [Not Recovered/Not Resolved]
  - Gallbladder disorder [Recovering/Resolving]
  - Weight decreased [Not Recovered/Not Resolved]
  - Vomiting [Recovering/Resolving]
  - Dysphonia [Recovering/Resolving]
  - Abdominal pain [Recovering/Resolving]

NARRATIVE: CASE EVENT DATE: 202005
